FAERS Safety Report 8308698-2 (Version None)
Quarter: 2012Q2

REPORT INFORMATION
  Report Type: 
  Country: None (occurrence: None)
  Receive Date: 20120420
  Receipt Date: 20120420
  Transmission Date: 20120825
  Serious: No
  Sender: FDA-Public Use
  Company Number: None

PATIENT
  Sex: Female

DRUGS (1)
  1. LEVETIRACETAM [Suspect]
     Dosage: 750MG. 1 BID ORAL
     Route: 048
     Dates: start: 20120110

REACTIONS (4)
  - AURA [None]
  - CONVULSION [None]
  - TREATMENT FAILURE [None]
  - DRUG INEFFECTIVE [None]
